FAERS Safety Report 6612233-4 (Version None)
Quarter: 2010Q1

REPORT INFORMATION
  Report Type: 
  Country: None (occurrence: None)
  Receive Date: 20100303
  Receipt Date: 20100222
  Transmission Date: 20100710
  Serious: Yes (Other)
  Sender: FDA-Public Use
  Company Number: GB-WATSON-2010-02325

PATIENT

DRUGS (2)
  1. RISPERIDONE [Suspect]
     Indication: AGGRESSION
     Dosage: UNK
     Route: 048
     Dates: start: 20080122
  2. RISPERIDONE [Suspect]
     Indication: ASPERGER'S DISORDER

REACTIONS (2)
  - BONE PAIN [None]
  - OSTEOPOROSIS [None]
